FAERS Safety Report 13909980 (Version 2)
Quarter: 2017Q3

REPORT INFORMATION
  Report Type: Report from Study
  Country: US (occurrence: US)
  Receive Date: 20170828
  Receipt Date: 20170831
  Transmission Date: 20171127
  Serious: Yes (Other)
  Sender: FDA-Public Use
  Company Number: PHEH2017US026984

PATIENT
  Sex: Female
  Weight: 103.4 kg

DRUGS (1)
  1. GILENYA [Suspect]
     Active Substance: FINGOLIMOD HYDROCHLORIDE
     Indication: MULTIPLE SCLEROSIS
     Dosage: 0.5 MG, QD
     Route: 048

REACTIONS (9)
  - Affect lability [Unknown]
  - Crying [Unknown]
  - Insomnia [Unknown]
  - Joint swelling [Unknown]
  - Peripheral swelling [Unknown]
  - Inappropriate affect [Unknown]
  - Malaise [Unknown]
  - Fatigue [Unknown]
  - Hypotension [Unknown]
